FAERS Safety Report 5370089-4 (Version None)
Quarter: 2007Q2

REPORT INFORMATION
  Report Type: 
  Country: None (occurrence: None)
  Receive Date: 20070615
  Receipt Date: 20070119
  Transmission Date: 20071010
  Serious: Yes (Other)
  Sender: FDA-Public Use
  Company Number: US-JNJFOC-20060606103

PATIENT
  Age: 52 Year
  Sex: Female

DRUGS (1)
  1. PEPCID AC [Suspect]
     Indication: GASTROOESOPHAGEAL REFLUX DISEASE
     Dosage: 20 MG, 1 IN 1 DAY
     Dates: start: 20060611, end: 20060614

REACTIONS (1)
  - HALLUCINATION [None]
